FAERS Safety Report 7767956-0 (Version None)
Quarter: 2011Q3

REPORT INFORMATION
  Report Type: 
  Country: None (occurrence: None)
  Receive Date: 20110922
  Receipt Date: 20110524
  Transmission Date: 20111222
  Serious: Yes (Hospitalization)
  Sender: FDA-Public Use
  Company Number: US-ASTRAZENECA-2009UW11838

PATIENT
  Age: 446 Month
  Sex: Female
  Weight: 96.2 kg

DRUGS (14)
  1. SEROQUEL [Suspect]
     Indication: DEPRESSION
     Route: 048
     Dates: start: 19980101, end: 20080101
  2. SEROQUEL [Suspect]
     Route: 048
     Dates: start: 20050226
  3. SEROQUEL [Suspect]
     Route: 048
     Dates: start: 20050226
  4. TRAZODONE HYDROCHLORIDE [Concomitant]
     Indication: DEPRESSION
     Dates: start: 20061003
  5. DILAUDID [Concomitant]
     Dosage: 4 MG
     Dates: start: 20060717
  6. FLEXERIL [Concomitant]
     Indication: MUSCLE SPASMS
     Dosage: 5 MG
     Dates: start: 20050921
  7. NEXIUM [Concomitant]
     Dates: start: 20061003
  8. VICODIN [Concomitant]
     Indication: PAIN
     Dosage: 5/500 PRN
     Dates: start: 20060717
  9. ZYRTEC [Concomitant]
     Dates: start: 20061003
  10. SEROQUEL [Suspect]
     Indication: INSOMNIA
     Route: 048
     Dates: start: 19980101, end: 20080101
  11. ZYRTEC [Concomitant]
     Dates: start: 20050216
  12. EFFEXOR [Concomitant]
     Indication: DEPRESSION
     Dates: start: 20061003
  13. SINGULAIR [Concomitant]
     Dates: start: 20061003
  14. GABAPENTIN [Concomitant]
     Dates: start: 20061003

REACTIONS (1)
  - PANCREATITIS CHRONIC [None]
